FAERS Safety Report 20765389 (Version 2)
Quarter: 2022Q3

REPORT INFORMATION
  Report Type: Spontaneous
  Country: US (occurrence: US)
  Receive Date: 20220428
  Receipt Date: 20220714
  Transmission Date: 20221026
  Serious: No
  Sender: FDA-Public Use
  Company Number: US-SA-SAC20220425000203

PATIENT
  Age: 13 Year
  Sex: Female

DRUGS (2)
  1. DUPIXENT [Suspect]
     Active Substance: DUPILUMAB
     Indication: Product used for unknown indication
     Dosage: 300 MG;OTHER
     Route: 058
     Dates: start: 202202, end: 202202
  2. ALVIS [Concomitant]

REACTIONS (3)
  - Fungal infection [Unknown]
  - Pruritus [Unknown]
  - Discharge [Unknown]
